FAERS Safety Report 18218278 (Version 1)
Quarter: 2020Q3

REPORT INFORMATION
  Report Type: Spontaneous
  Country: US (occurrence: US)
  Receive Date: 20200831
  Receipt Date: 20200831
  Transmission Date: 20201103
  Serious: No
  Sender: FDA-Public Use
  Company Number: None

PATIENT
  Age: 67 Year
  Sex: Male
  Weight: 78.02 kg

DRUGS (1)
  1. NAPROXEN. [Suspect]
     Active Substance: NAPROXEN
     Indication: PAIN
     Route: 048
     Dates: start: 20200108, end: 20200214

REACTIONS (6)
  - Anaemia [None]
  - Gastritis erosive [None]
  - Gastric haemorrhage [None]
  - Duodenal ulcer [None]
  - Melaena [None]
  - Alcohol use [None]

NARRATIVE: CASE EVENT DATE: 20200211
